FAERS Safety Report 6287934-0 (Version None)
Quarter: 2009Q3

REPORT INFORMATION
  Report Type: 
  Country: None (occurrence: None)
  Receive Date: 20090729
  Receipt Date: 20090723
  Transmission Date: 20100115
  Serious: Yes (Hospitalization)
  Sender: FDA-Public Use
  Company Number: KR-BRISTOL-MYERS SQUIBB COMPANY-14618839

PATIENT
  Age: 66 Year
  Sex: Male
  Weight: 48 kg

DRUGS (3)
  1. CETUXIMAB [Suspect]
     Indication: GASTROOESOPHAGEAL CANCER
     Dosage: RECENT INFU ON 30APR09, CETUXIMAB TEMPORARILY DISCONTINUED ON 07-MAY-2009
     Route: 042
     Dates: start: 20090326
  2. CISPLATIN [Suspect]
     Indication: GASTROOESOPHAGEAL CANCER
     Dosage: RECENT INFU ON 24APR09
     Route: 042
     Dates: start: 20090326
  3. CAPECITABINE [Suspect]
     Indication: GASTROOESOPHAGEAL CANCER
     Dosage: TABS ON DAY 1-15 RECENT INFU ON 4MAY09 TEMPORARILY DISCONTINUED ON 5MAY09
     Route: 048
     Dates: start: 20090326

REACTIONS (1)
  - MUCOSAL INFLAMMATION [None]
